FAERS Safety Report 15446178 (Version 1)
Quarter: 2018Q3

REPORT INFORMATION
  Report Type: Spontaneous
  Country: US (occurrence: US)
  Receive Date: 20180925
  Receipt Date: 20180925
  Transmission Date: 20181010
  Serious: Yes (Death)
  Sender: FDA-Public Use
  Company Number: None

PATIENT
  Age: 13 Year
  Sex: Male
  Weight: 90 kg

DRUGS (1)
  1. HYDROCHLOROTHIAZIDE 12.5 MG TABLET [Suspect]
     Active Substance: HYDROCHLOROTHIAZIDE
     Indication: OEDEMA
     Dosage: ?          QUANTITY:1 TABLET(S);?
     Route: 048
     Dates: start: 20180510, end: 20180524

REACTIONS (3)
  - Drug dispensing error [None]
  - Wrong drug administered [None]
  - Product label issue [None]

NARRATIVE: CASE EVENT DATE: 20180524
